FAERS Safety Report 6211903-X (Version None)
Quarter: 2009Q2

REPORT INFORMATION
  Report Type: 
  Country: None (occurrence: None)
  Receive Date: 20090602
  Receipt Date: 20090519
  Transmission Date: 20091009
  Serious: Yes (Hospitalization, Other)
  Sender: FDA-Public Use
  Company Number: US-BAYER-200911465BCC

PATIENT
  Age: 72 Year
  Sex: Female

DRUGS (7)
  1. ASPIRIN [Suspect]
     Indication: THROMBOSIS PROPHYLAXIS
     Dosage: BEGAN TAKING ASPIRIN 325 MG DAILY 4-5 YEARS AGO
     Route: 048
  2. ASPIRIN [Suspect]
     Route: 065
     Dates: start: 20090501
  3. ASPIRIN [Suspect]
     Route: 065
     Dates: start: 20090101, end: 20090501
  4. PLAVIX [Suspect]
     Indication: THROMBOSIS PROPHYLAXIS
     Dosage: TOTAL DAILY DOSE: 75 MG  UNIT DOSE: 75 MG
     Route: 048
     Dates: start: 20090101
  5. PLAVIX [Suspect]
     Dosage: TOTAL DAILY DOSE: 75 MG  UNIT DOSE: 75 MG
     Route: 048
     Dates: start: 20090101, end: 20090501
  6. WARFARIN [Suspect]
     Indication: ARTERIAL BYPASS OPERATION
     Dates: start: 20090129, end: 20090501
  7. WARFARIN [Suspect]
     Dates: start: 20090501

REACTIONS (7)
  - APHASIA [None]
  - BLOOD COUNT ABNORMAL [None]
  - CEREBROVASCULAR ACCIDENT [None]
  - GASTRIC DISORDER [None]
  - GASTROOESOPHAGEAL REFLUX DISEASE [None]
  - HAEMORRHAGE [None]
  - URTICARIA [None]
